FAERS Safety Report 6033975-8 (Version None)
Quarter: 2009Q1

REPORT INFORMATION
  Report Type: 
  Country: None (occurrence: None)
  Receive Date: 20090112
  Receipt Date: 20090108
  Transmission Date: 20090719
  Serious: Yes (Death, Other)
  Sender: FDA-Public Use
  Company Number: PHHY2008JP31615

PATIENT
  Age: 78 Year
  Sex: Male

DRUGS (6)
  1. DIOVAN [Suspect]
     Indication: HYPERTENSION
     Dosage: 80 MG/DAY
     Route: 048
     Dates: start: 20081022, end: 20081210
  2. PURSENNID                               /SCH/ [Suspect]
     Dosage: UNK
     Route: 048
     Dates: start: 20081014
  3. AMLODIPINE [Concomitant]
     Dosage: 5 MG UNK
     Route: 048
  4. MUCOSTA [Concomitant]
     Dosage: UNK
     Dates: start: 20081021
  5. GOODMIN [Concomitant]
     Dosage: UNK
     Dates: start: 20081015
  6. MEXITIL [Concomitant]

REACTIONS (4)
  - EYELID OEDEMA [None]
  - FACE OEDEMA [None]
  - MALIGNANT NEOPLASM PROGRESSION [None]
  - PNEUMONIA [None]
